FAERS Safety Report 10025284 (Version 1)
Quarter: 2014Q1

REPORT INFORMATION
  Report Type: Spontaneous
  Country: US (occurrence: None)
  Receive Date: 20140304
  Receipt Date: 20140304
  Transmission Date: 20141002
  Serious: Yes (Hospitalization)
  Sender: FDA-Public Use
  Company Number: RB-50942-2013

PATIENT
  Age: 60 Year
  Sex: Female

DRUGS (1)
  1. SUBOXONE [Suspect]
     Indication: PRODUCT USED FOR UNKNOWN INDICATION
     Dosage: (DOSING DETAILS UNKNOWN UNKNOWN)

REACTIONS (4)
  - Dyspnoea [None]
  - Drug abuse [None]
  - Palpitations [None]
  - Substance abuse [None]
